FAERS Safety Report 18110099 (Version 1)
Quarter: 2020Q3

REPORT INFORMATION
  Report Type: Spontaneous
  Country: CH (occurrence: CH)
  Receive Date: 20200804
  Receipt Date: 20200804
  Transmission Date: 20201103
  Serious: Yes (Death, Hospitalization)
  Sender: FDA-Public Use
  Company Number: CH-ASTRAZENECA-2020SE97569

PATIENT
  Age: 30051 Day
  Sex: Female
  Weight: 65 kg

DRUGS (10)
  1. ASPIRIN CARDIO [Suspect]
     Active Substance: ASPIRIN
     Indication: PERIPHERAL ARTERIAL OCCLUSIVE DISEASE
     Dosage: 100.0MG UNKNOWN
     Route: 065
  2. DAFALGAN [Concomitant]
     Active Substance: ACETAMINOPHEN
  3. TOREM [Concomitant]
     Active Substance: TORSEMIDE
  4. PANTOZOL [Concomitant]
     Active Substance: PANTOPRAZOLE SODIUM
  5. CANDESARTAN. [Concomitant]
     Active Substance: CANDESARTAN
  6. DILATREND [Concomitant]
     Active Substance: CARVEDILOL
  7. VIAGRA [Concomitant]
     Active Substance: SILDENAFIL CITRATE
  8. SYMBICORT [Suspect]
     Active Substance: BUDESONIDE\FORMOTEROL FUMARATE DIHYDRATE
     Route: 055
  9. DOXAZOSIN [Concomitant]
     Active Substance: DOXAZOSIN MESYLATE
  10. SPIRIVA [Concomitant]
     Active Substance: TIOTROPIUM BROMIDE MONOHYDRATE

REACTIONS (1)
  - Cerebral haemorrhage [Fatal]

NARRATIVE: CASE EVENT DATE: 20200716
